FAERS Safety Report 24948933 (Version 1)
Quarter: 2025Q1

REPORT INFORMATION
  Report Type: Spontaneous
  Country: CA (occurrence: CA)
  Receive Date: 20250210
  Receipt Date: 20250210
  Transmission Date: 20250409
  Serious: Yes (Other)
  Sender: PFIZER
  Company Number: CA-PFIZER INC-202300288104

PATIENT
  Age: 23 Year
  Sex: Male
  Weight: 66 kg

DRUGS (4)
  1. METHOTREXATE SODIUM [Suspect]
     Active Substance: METHOTREXATE SODIUM
     Indication: Crohn^s disease
     Route: 065
     Dates: start: 2015
  2. METHOTREXATE SODIUM [Suspect]
     Active Substance: METHOTREXATE SODIUM
     Indication: Immunosuppression
     Dosage: 12.5 MG, WEEKLY
     Route: 048
  3. FOLIC ACID [Concomitant]
     Active Substance: FOLIC ACID
     Route: 065
     Dates: start: 2015
  4. REMICADE [Concomitant]
     Active Substance: INFLIXIMAB
     Route: 065
     Dates: start: 2015

REACTIONS (3)
  - Gastrointestinal fistula [Unknown]
  - Drug ineffective for unapproved indication [Unknown]
  - Off label use [Unknown]
